FAERS Safety Report 13961136 (Version 2)
Quarter: 2017Q3

REPORT INFORMATION
  Report Type: Report from Study
  Country: CA (occurrence: CA)
  Receive Date: 20170912
  Receipt Date: 20170918
  Transmission Date: 20171128
  Serious: Yes (Death, Life-Threatening, Other)
  Sender: FDA-Public Use
  Company Number: CA-PFIZER INC-2017352799

PATIENT
  Age: 4 Year
  Sex: Male
  Weight: 19.6 kg

DRUGS (33)
  1. CYTARABINE HOSPIRA [Concomitant]
     Active Substance: CYTARABINE
     Indication: CHEMOTHERAPY
     Dosage: 150 MG, DAILY (CONTINUOUS INFUSION)
     Route: 042
     Dates: start: 20170818, end: 20170824
  2. ONDANSETRON. [Concomitant]
     Active Substance: ONDANSETRON
     Indication: ANTIEMETIC SUPPORTIVE CARE
     Dosage: 4 MG, DAILY PRE CHEMO
     Route: 042
     Dates: start: 20170810, end: 20170816
  3. CESAMET [Concomitant]
     Active Substance: NABILONE
     Indication: ANTIEMETIC SUPPORTIVE CARE
     Dosage: 0.5 MG, DAILY PM
     Route: 048
     Dates: start: 20170731, end: 20170817
  4. CESAMET [Concomitant]
     Active Substance: NABILONE
     Dosage: 1 MG, DAILY PM
     Route: 048
     Dates: start: 20170820, end: 20170824
  5. INFANTS TYLENOL [Concomitant]
     Active Substance: ACETAMINOPHEN
     Indication: PYREXIA
     Dosage: UNK UNK, AS NEEDED
     Route: 048
  6. CESAMET [Concomitant]
     Active Substance: NABILONE
     Dosage: 1 MG, 2X/DAY
     Route: 048
     Dates: start: 20170825, end: 20170829
  7. EMEND [Concomitant]
     Active Substance: APREPITANT
     Indication: ANTIEMETIC SUPPORTIVE CARE
     Dosage: 60 MG, SINGLE
     Route: 048
     Dates: start: 20170818
  8. AZITHROMYCIN ANHYDROUS. [Concomitant]
     Active Substance: AZITHROMYCIN ANHYDROUS
     Dosage: 190 MG, DAILY
     Route: 042
     Dates: start: 20170827, end: 20170828
  9. FLUCONAZOLE BAXTER [Concomitant]
     Indication: ANTIFUNGAL PROPHYLAXIS
     Dosage: 100 MG, DAILY
     Route: 042
     Dates: start: 20170808, end: 20170822
  10. CANCIDAS [Concomitant]
     Active Substance: CASPOFUNGIN ACETATE
     Indication: ANTIFUNGAL PROPHYLAXIS
     Dosage: 55 MG, UNK
     Route: 042
     Dates: start: 20170823
  11. RANITIDINE. [Concomitant]
     Active Substance: RANITIDINE
     Indication: ANTACID THERAPY
     Dosage: 50 MG, DAILY
     Route: 042
     Dates: start: 20170824, end: 20170825
  12. GEMTUZUMAB OZOGAMICIN [Suspect]
     Active Substance: GEMTUZUMAB OZOGAMICIN
     Indication: ACUTE MONOCYTIC LEUKAEMIA
     Dosage: 2.3 MG, TWICE
     Route: 042
     Dates: start: 20170821, end: 20170824
  13. CEFTRIAXONE. [Concomitant]
     Active Substance: CEFTRIAXONE
     Indication: ANTIBIOTIC THERAPY
     Dosage: 1515 MG, DAILY
     Route: 042
     Dates: start: 20170801, end: 20170822
  14. CANCIDAS [Concomitant]
     Active Substance: CASPOFUNGIN ACETATE
     Dosage: 40 MG, DAILY
     Route: 042
     Dates: start: 20170824, end: 20170829
  15. AZITHROMYCIN ANHYDROUS. [Concomitant]
     Active Substance: AZITHROMYCIN ANHYDROUS
     Indication: PNEUMONIA
     Dosage: 94 MG, SINGLE
     Route: 042
     Dates: start: 20170826
  16. PANTOPRAZOLE SODIUM. [Concomitant]
     Active Substance: PANTOPRAZOLE SODIUM
     Indication: ANTACID THERAPY
     Dosage: 20 MG, DAILY
     Route: 042
     Dates: start: 20170826, end: 20170829
  17. GRAVOL [Concomitant]
     Active Substance: DIMENHYDRINATE
     Dosage: UNK UNK, AS NEEDED
  18. JAMP DIPHENHYDRAMINE [Concomitant]
     Dosage: UNK UNK, AS NEEDED
  19. VIDAZA [Concomitant]
     Active Substance: AZACITIDINE
     Indication: CHEMOTHERAPY
     Dosage: 39 MG, DAILY
     Route: 042
     Dates: start: 20170810, end: 20170816
  20. CESAMET [Concomitant]
     Active Substance: NABILONE
     Dosage: 1 MG, 2X/DAY
     Route: 048
     Dates: start: 20170818, end: 20170819
  21. VANCOMYCIN PFIZER [Concomitant]
     Active Substance: VANCOMYCIN HYDROCHLORIDE
     Dosage: 600 MG, EVERY 8 HOURS
     Route: 042
     Dates: start: 20170827, end: 20170829
  22. MEROPENEM SANDOZ [Concomitant]
     Active Substance: MEROPENEM
     Indication: ANTIBIOTIC THERAPY
     Dosage: 376 MG, EVERY 8 HOURS
     Route: 042
     Dates: start: 20170826, end: 20170829
  23. PENTAMIDINE [Concomitant]
     Active Substance: PENTAMIDINE
     Indication: PNEUMOCYSTIS JIROVECII PNEUMONIA
     Dosage: UNK UNK, SINGLE
     Route: 042
     Dates: start: 20170817
  24. IDARUBICIN [Concomitant]
     Active Substance: IDARUBICIN
     Indication: CHEMOTHERAPY
     Dosage: 9 MG, 3X/DAY
     Route: 042
     Dates: start: 20170818, end: 20170820
  25. CESAMET [Concomitant]
     Active Substance: NABILONE
     Dosage: 0.5 MG, DAILY AM
     Route: 048
     Dates: start: 20170820, end: 20170824
  26. EMEND [Concomitant]
     Active Substance: APREPITANT
     Dosage: 40 MG, DAILY
     Route: 048
     Dates: start: 20170819, end: 20170820
  27. PIPERACILLIN/TAZOBACTAM SANDOZ [Concomitant]
     Active Substance: PIPERACILLIN SODIUM\TAZOBACTAM SODIUM
     Indication: ANTIBIOTIC PROPHYLAXIS
     Dosage: 2 G, EVERY 6 HOURS
     Route: 042
     Dates: start: 20170820, end: 20170826
  28. ZINECARD /01200101/ [Concomitant]
     Indication: CARDIOVASCULAR EVENT PROPHYLAXIS
     Dosage: 460 MG, 3X/DAY
     Route: 042
     Dates: start: 20170818, end: 20170820
  29. ONDANSETRON. [Concomitant]
     Active Substance: ONDANSETRON
     Dosage: 4 MG, EVERY 8 HOURS
     Route: 042
     Dates: start: 20170818, end: 20170831
  30. TEVA NABILONE [Concomitant]
     Indication: ANTIEMETIC SUPPORTIVE CARE
     Dosage: 0.25 MG, DAILY AM
     Route: 048
     Dates: start: 20170801, end: 20170817
  31. SANDOZ TOBRAMYCIN [Concomitant]
     Indication: ANTIBIOTIC THERAPY
     Dosage: 50 MG, EVERY 8 HOURS
     Route: 042
     Dates: start: 20170820, end: 20170822
  32. VANCOMYCIN PFIZER [Concomitant]
     Active Substance: VANCOMYCIN HYDROCHLORIDE
     Indication: ANTIBIOTIC THERAPY
     Dosage: 500 MG, EVERY 8 HOURS
     Route: 042
     Dates: start: 20170820, end: 20170822
  33. VANCOMYCIN PFIZER [Concomitant]
     Active Substance: VANCOMYCIN HYDROCHLORIDE
     Dosage: 600 MG, EVERY 8 HOURS
     Route: 042
     Dates: start: 20170825, end: 20170827

REACTIONS (8)
  - Central nervous system haemorrhage [Fatal]
  - Aspergillus infection [Unknown]
  - Pneumonia [Unknown]
  - Malaise [Unknown]
  - Lethargy [Unknown]
  - Vasculitic rash [Unknown]
  - Loss of consciousness [Fatal]
  - Pyrexia [Unknown]

NARRATIVE: CASE EVENT DATE: 20170825
